FAERS Safety Report 4577520-2 (Version None)
Quarter: 2005Q1

REPORT INFORMATION
  Report Type: 
  Country: None (occurrence: None)
  Receive Date: 20050208
  Receipt Date: 20050125
  Transmission Date: 20050727
  Serious: Yes (Other)
  Sender: FDA-Public Use
  Company Number: JP-2005-001186

PATIENT
  Age: 73 Year
  Sex: Male
  Weight: 67 kg

DRUGS (14)
  1. FLUDARA [Suspect]
     Indication: SPLENIC MARGINAL ZONE LYMPHOMA STAGE IV
     Dosage: SEE IMAGE
     Route: 042
     Dates: start: 20040227, end: 20040229
  2. FLUDARA [Suspect]
     Indication: SPLENIC MARGINAL ZONE LYMPHOMA STAGE IV
     Dosage: SEE IMAGE
     Route: 042
     Dates: start: 20040327, end: 20040329
  3. RITUXAN [Concomitant]
  4. KYTRIL [Concomitant]
  5. NOVANTRON (MITOXANTRONE, MITOXANTRONE HYDROCHLORIDE) [Concomitant]
  6. ENDOXAN [Concomitant]
  7. CASODEX [Concomitant]
  8. PROMAC (P0LAPREZINC) [Concomitant]
  9. FAMOTIDINE [Concomitant]
  10. AMARYL [Concomitant]
  11. NIVADIL (NILVADIPINE) [Concomitant]
  12. SULFAMETHOXAZOLE + TRIMETHOPRIM [Concomitant]
  13. CIPROXAN (CIPROFLOXACIN HYDROHCLORIDE) [Concomitant]
  14. DIFLUCAN [Concomitant]

REACTIONS (4)
  - LARGE GRANULAR LYMPHOCYTOSIS [None]
  - PLATELET COUNT DECREASED [None]
  - RED BLOOD CELL COUNT INCREASED [None]
  - WHITE BLOOD CELL COUNT DECREASED [None]
